FAERS Safety Report 6614151-4 (Version None)
Quarter: 2010Q1

REPORT INFORMATION
  Report Type: 
  Country: None (occurrence: None)
  Receive Date: 20100304
  Receipt Date: 20100224
  Transmission Date: 20100710
  Serious: Yes (Hospitalization)
  Sender: FDA-Public Use
  Company Number: GXKR2010AT02308

PATIENT
  Age: 30 Year
  Sex: Female

DRUGS (1)
  1. CLAVAMOX (NGX) [Suspect]
     Indication: TOOTHACHE
     Route: 048

REACTIONS (3)
  - ANGIOEDEMA [None]
  - BLOOD PRESSURE FLUCTUATION [None]
  - DYSPNOEA [None]
